FAERS Safety Report 9580083 (Version 2)
Quarter: 2013Q4

REPORT INFORMATION
  Report Type: Spontaneous
  Country: IN (occurrence: IN)
  Receive Date: 20131002
  Receipt Date: 20131011
  Transmission Date: 20140711
  Serious: Yes (Death)
  Sender: FDA-Public Use
  Company Number: IN-ROCHE-1283948

PATIENT
  Age: 55 Year
  Sex: Male

DRUGS (1)
  1. METALYSE [Suspect]
     Indication: ACUTE MYOCARDIAL INFARCTION
     Route: 042
     Dates: start: 20130927

REACTIONS (2)
  - Drug ineffective [Fatal]
  - Haemorrhage intracranial [Fatal]
